FAERS Safety Report 13599979 (Version 1)
Quarter: 2017Q2

REPORT INFORMATION
  Report Type: Spontaneous
  Country: US (occurrence: US)
  Receive Date: 20170601
  Receipt Date: 20170601
  Transmission Date: 20170830
  Serious: Yes (Other)
  Sender: FDA-Public Use
  Company Number: US-ASTRAZENECA-2017SE56654

PATIENT
  Sex: Male

DRUGS (1)
  1. SYMLIN [Suspect]
     Active Substance: PRAMLINTIDE ACETATE
     Route: 058
     Dates: start: 2007

REACTIONS (6)
  - Metastases to lung [Unknown]
  - Intentional product misuse [Unknown]
  - Liver disorder [Unknown]
  - Single functional kidney [Unknown]
  - Malignant neoplasm progression [Unknown]
  - Neoplasm malignant [Unknown]
